FAERS Safety Report 13393341 (Version 1)
Quarter: 2017Q1

REPORT INFORMATION
  Report Type: Spontaneous
  Country: IE (occurrence: IE)
  Receive Date: 20170331
  Receipt Date: 20170331
  Transmission Date: 20170429
  Serious: Yes (Hospitalization)
  Sender: FDA-Public Use
  Company Number: IE-PFIZER INC-2017131274

PATIENT
  Sex: Male

DRUGS (1)
  1. GENOTROPIN [Suspect]
     Active Substance: SOMATROPIN
     Indication: PRADER-WILLI SYNDROME
     Dosage: 0.1 MG, UNK

REACTIONS (3)
  - Pyrexia [Unknown]
  - Gastroenteritis [Unknown]
  - Malaise [Unknown]

NARRATIVE: CASE EVENT DATE: 20170323
